FAERS Safety Report 19887074 (Version 2)
Quarter: 2021Q4

REPORT INFORMATION
  Report Type: Spontaneous
  Country: SA (occurrence: SA)
  Receive Date: 20210928
  Receipt Date: 20211204
  Transmission Date: 20220303
  Serious: Yes (Other)
  Sender: FDA-Public Use
  Company Number: SA-002147023-NVSC2021SA211266

PATIENT
  Age: 13 Year
  Sex: Male

DRUGS (1)
  1. XOLAIR [Suspect]
     Active Substance: OMALIZUMAB
     Indication: Asthma
     Dosage: 2 VIALS OF (300 MG)
     Route: 058

REACTIONS (4)
  - Dysphagia [Unknown]
  - Erythema [Unknown]
  - Lacrimation increased [Unknown]
  - Dizziness [Unknown]
